FAERS Safety Report 15943236 (Version 2)
Quarter: 2019Q1

REPORT INFORMATION
  Report Type: Spontaneous
  Country: US (occurrence: US)
  Receive Date: 20190210
  Receipt Date: 20190226
  Transmission Date: 20190417
  Serious: Yes (Hospitalization, Other)
  Sender: FDA-Public Use
  Company Number: US-ASTRAZENECA-2018SF33333

PATIENT
  Age: 21197 Day
  Sex: Female
  Weight: 65.8 kg

DRUGS (41)
  1. POTASSIUM CHLORIDE. [Concomitant]
     Active Substance: POTASSIUM CHLORIDE
  2. VICODIN [Concomitant]
     Active Substance: ACETAMINOPHEN\HYDROCODONE BITARTRATE
  3. ALLEGRA [Concomitant]
     Active Substance: FEXOFENADINE HYDROCHLORIDE
  4. ATIVAN [Concomitant]
     Active Substance: LORAZEPAM
  5. PRILOSEC OTC [Suspect]
     Active Substance: OMEPRAZOLE MAGNESIUM
     Route: 048
     Dates: start: 20110602, end: 20121216
  6. LISINOPRIL. [Concomitant]
     Active Substance: LISINOPRIL
  7. ALBUTEROL. [Concomitant]
     Active Substance: ALBUTEROL
  8. TYLENOL [Concomitant]
     Active Substance: ACETAMINOPHEN
  9. PROZAC [Concomitant]
     Active Substance: FLUOXETINE HYDROCHLORIDE
  10. CLARITIN [Concomitant]
     Active Substance: LORATADINE
  11. OXYBUTYNIN. [Concomitant]
     Active Substance: OXYBUTYNIN CHLORIDE
  12. NOVOLOG [Concomitant]
     Active Substance: INSULIN ASPART
  13. TOPROL XL [Concomitant]
     Active Substance: METOPROLOL SUCCINATE
  14. FENOFIBRATE. [Concomitant]
     Active Substance: FENOFIBRATE
  15. PRANDIN [Concomitant]
     Active Substance: REPAGLINIDE
  16. GLUCAGON. [Concomitant]
     Active Substance: GLUCAGON
  17. TOPAMAX [Concomitant]
     Active Substance: TOPIRAMATE
  18. TEMAZEPAM. [Concomitant]
     Active Substance: TEMAZEPAM
  19. PLAVIX [Concomitant]
     Active Substance: CLOPIDOGREL BISULFATE
  20. LANTUS [Concomitant]
     Active Substance: INSULIN GLARGINE
  21. BYSTOLIC [Concomitant]
     Active Substance: NEBIVOLOL HYDROCHLORIDE
  22. HYDROXYCHLOROQUINE [Concomitant]
     Active Substance: HYDROXYCHLOROQUINE
  23. NEXIUM [Suspect]
     Active Substance: ESOMEPRAZOLE MAGNESIUM
     Route: 048
     Dates: start: 20070207, end: 20110628
  24. SINGULAIR [Concomitant]
     Active Substance: MONTELUKAST SODIUM
  25. PRILOSEC [Concomitant]
     Active Substance: OMEPRAZOLE MAGNESIUM
  26. FLEXERIL [Concomitant]
     Active Substance: CYCLOBENZAPRINE HYDROCHLORIDE
  27. PRILOSEC OTC [Suspect]
     Active Substance: OMEPRAZOLE MAGNESIUM
     Route: 048
     Dates: start: 200702, end: 201704
  28. XANAX [Concomitant]
     Active Substance: ALPRAZOLAM
  29. NEURONTIN [Concomitant]
     Active Substance: GABAPENTIN
  30. VITAMIN D [Concomitant]
     Active Substance: CHOLECALCIFEROL
  31. ZOCOR [Concomitant]
     Active Substance: SIMVASTATIN
  32. LYRICA [Concomitant]
     Active Substance: PREGABALIN
  33. PROTONIX [Concomitant]
     Active Substance: PANTOPRAZOLE SODIUM
  34. NEXIUM [Suspect]
     Active Substance: ESOMEPRAZOLE MAGNESIUM
     Route: 048
  35. METOPROLOL. [Concomitant]
     Active Substance: METOPROLOL
  36. DALIRESP [Concomitant]
     Active Substance: ROFLUMILAST
  37. ADVAIR HFA [Concomitant]
     Active Substance: FLUTICASONE PROPIONATE\SALMETEROL XINAFOATE
  38. OXYCODONE [Concomitant]
     Active Substance: OXYCODONE
  39. NEXIUM [Suspect]
     Active Substance: ESOMEPRAZOLE MAGNESIUM
     Route: 048
     Dates: start: 200702, end: 201704
  40. PRAVASTATIN. [Concomitant]
     Active Substance: PRAVASTATIN
  41. FLOVENT [Concomitant]
     Active Substance: FLUTICASONE PROPIONATE

REACTIONS (5)
  - Renal injury [Unknown]
  - Nephrogenic anaemia [Unknown]
  - Acute kidney injury [Unknown]
  - Chronic kidney disease [Unknown]
  - End stage renal disease [Unknown]

NARRATIVE: CASE EVENT DATE: 20090406
